FAERS Safety Report 20628628 (Version 1)
Quarter: 2022Q1

REPORT INFORMATION
  Report Type: Spontaneous
  Country: US (occurrence: US)
  Receive Date: 20220323
  Receipt Date: 20220323
  Transmission Date: 20220424
  Serious: No
  Sender: FDA-Public Use
  Company Number: US-AMGEN-USASP2022051630

PATIENT
  Age: 74 Year
  Sex: Male

DRUGS (1)
  1. VECTIBIX [Suspect]
     Active Substance: PANITUMUMAB
     Indication: Product used for unknown indication
     Dosage: UNK
     Route: 065
     Dates: start: 20191011, end: 20210415

REACTIONS (2)
  - Rash pruritic [Unknown]
  - Erythema [Unknown]

NARRATIVE: CASE EVENT DATE: 20210101
